FAERS Safety Report 8557544-0 (Version None)
Quarter: 2012Q3

REPORT INFORMATION
  Report Type: 
  Country: None (occurrence: None)
  Receive Date: 20120801
  Receipt Date: 20120726
  Transmission Date: 20120928
  Serious: Yes (Hospitalization, Other)
  Sender: FDA-Public Use
  Company Number: US-PFIZER INC-2012137306

PATIENT
  Sex: Male
  Weight: 61.224 kg

DRUGS (5)
  1. PREDNISONE [Concomitant]
     Indication: RENAL TRANSPLANT
     Dosage: UNK
  2. LACTAID [Concomitant]
     Indication: LACTOSE INTOLERANCE
  3. SUTENT [Suspect]
     Indication: METASTATIC RENAL CELL CARCINOMA
     Dosage: 50 MG, FOR 42 DAY CYCLE (CYCLE 1)
     Dates: start: 20120519, end: 20120615
  4. IMURAN [Concomitant]
     Indication: RENAL TRANSPLANT
     Dosage: UNK
  5. SUTENT [Suspect]
     Dosage: CYCLE 2
     Dates: start: 20120630, end: 20120705

REACTIONS (8)
  - DIARRHOEA [None]
  - ERUCTATION [None]
  - FLATULENCE [None]
  - HYPERCHLORHYDRIA [None]
  - WEIGHT DECREASED [None]
  - DIVERTICULITIS INTESTINAL HAEMORRHAGIC [None]
  - ANAEMIA [None]
  - BONE PAIN [None]
